FAERS Safety Report 7417436-7 (Version None)
Quarter: 2011Q2

REPORT INFORMATION
  Report Type: 
  Country: None (occurrence: None)
  Receive Date: 20110412
  Receipt Date: 20110412
  Transmission Date: 20111010
  Serious: No
  Sender: FDA-Public Use
  Company Number: None

PATIENT
  Sex: Female
  Weight: 70.3075 kg

DRUGS (1)
  1. LATISSE [Suspect]
     Indication: GROWTH OF EYELASHES
     Dosage: 2 DROPS  1 DROP/2 NIGHTS
     Route: 047
     Dates: start: 20110207, end: 20110208

REACTIONS (3)
  - KERATITIS [None]
  - VISION BLURRED [None]
  - EYELID SENSORY DISORDER [None]
